FAERS Safety Report 7206850-0 (Version None)
Quarter: 2011Q1

REPORT INFORMATION
  Report Type: 
  Country: None (occurrence: None)
  Receive Date: 20110103
  Receipt Date: 20100520
  Transmission Date: 20110831
  Serious: No
  Sender: FDA-Public Use
  Company Number: US-PFIZER INC-2010064417

PATIENT
  Age: 40 Year
  Sex: Female

DRUGS (1)
  1. PENICILLIN [Suspect]
     Indication: TOOTH DISORDER
     Dosage: UNK

REACTIONS (1)
  - RASH [None]
